FAERS Safety Report 9639833 (Version 1)
Quarter: 2013Q4

REPORT INFORMATION
  Report Type: Spontaneous
  Country: US (occurrence: None)
  Receive Date: 20131021
  Receipt Date: 20131021
  Transmission Date: 20140711
  Serious: Yes (Hospitalization)
  Sender: FDA-Public Use
  Company Number: None

PATIENT
  Age: 67 Year
  Sex: Female
  Weight: 76.66 kg

DRUGS (1)
  1. BOTOX [Suspect]
     Indication: MIGRAINE
     Dates: start: 20130712, end: 20131020

REACTIONS (7)
  - Dyspnoea [None]
  - Dysphagia [None]
  - Asthenia [None]
  - Impaired work ability [None]
  - Renal disorder [None]
  - Atrial fibrillation [None]
  - Impaired gastric emptying [None]
